FAERS Safety Report 4695370-3 (Version None)
Quarter: 2005Q2

REPORT INFORMATION
  Report Type: 
  Country: None (occurrence: None)
  Receive Date: 20050617
  Receipt Date: 20050601
  Transmission Date: 20051028
  Serious: Yes (Death)
  Sender: FDA-Public Use
  Company Number: 11317

PATIENT
  Age: 68 Year
  Sex: Male

DRUGS (3)
  1. MITOMYCIN [Suspect]
     Dosage: 4 MG INJ
     Dates: start: 20021129
  2. EPIRUBICIN [Suspect]
     Dosage: 20 MG INJ
     Dates: start: 20021129
  3. FLUOROURACIL [Suspect]
     Dosage: 250 MG INJ
     Dates: start: 20021129

REACTIONS (8)
  - CHOLANGITIS SCLEROSING [None]
  - CONDITION AGGRAVATED [None]
  - EATING DISORDER [None]
  - HEPATIC FAILURE [None]
  - HEPATIC FUNCTION ABNORMAL [None]
  - INFUSION RELATED REACTION [None]
  - METASTASES TO LUNG [None]
  - OEDEMA PERIPHERAL [None]
